FAERS Safety Report 6464681-3 (Version None)
Quarter: 2009Q4

REPORT INFORMATION
  Report Type: 
  Country: None (occurrence: None)
  Receive Date: 20091124
  Receipt Date: 20091118
  Transmission Date: 20100525
  Serious: Yes (Hospitalization)
  Sender: FDA-Public Use
  Company Number: PACLITAXEL-OCT-05

PATIENT
  Age: 36 Year
  Sex: Female

DRUGS (5)
  1. TAXOL [Suspect]
     Indication: SQUAMOUS CELL CARCINOMA
  2. CARBOPLATIN [Suspect]
     Indication: SQUAMOUS CELL CARCINOMA
  3. PREDNISOLONE [Concomitant]
  4. TACROLIMUS [Concomitant]
  5. RAPAMYCIN [Concomitant]

REACTIONS (7)
  - AUTOIMMUNE HEPATITIS [None]
  - BILIARY TRACT DISORDER [None]
  - HEPATIC FAILURE [None]
  - HEPATIC NECROSIS [None]
  - HEPATIC NEOPLASM MALIGNANT [None]
  - LIVER TRANSPLANT [None]
  - LIVER TRANSPLANT REJECTION [None]
